FAERS Safety Report 8462155-1 (Version None)
Quarter: 2012Q2

REPORT INFORMATION
  Report Type: 
  Country: None (occurrence: None)
  Receive Date: 20120625
  Receipt Date: 20120613
  Transmission Date: 20120825
  Serious: Yes (Other)
  Sender: FDA-Public Use
  Company Number: GB-JNJFOC-20120507501

PATIENT
  Sex: Female

DRUGS (5)
  1. PROCYCLIDINE HYDROCHLORIDE 2MG TAB [Concomitant]
     Route: 065
  2. PALIPERIDONE [Suspect]
     Dosage: DAY 8
     Route: 030
     Dates: start: 20120505
  3. PALIPERIDONE [Suspect]
     Indication: SCHIZOPHRENIA
     Dosage: DAY 1
     Route: 030
     Dates: start: 20120428
  4. SULPIRIDE [Concomitant]
     Indication: SCHIZOPHRENIA
     Route: 048
  5. CLONAZEPAM [Concomitant]
     Route: 065

REACTIONS (18)
  - MUSCLE TIGHTNESS [None]
  - AGITATION [None]
  - MUSCULOSKELETAL STIFFNESS [None]
  - HALLUCINATION, VISUAL [None]
  - HALLUCINATION, AUDITORY [None]
  - DIZZINESS [None]
  - SPEECH DISORDER [None]
  - ABNORMAL BEHAVIOUR [None]
  - CHEST DISCOMFORT [None]
  - DEPRESSION [None]
  - ANXIETY [None]
  - FATIGUE [None]
  - WEIGHT INCREASED [None]
  - DISTURBANCE IN ATTENTION [None]
  - HUNGER [None]
  - DYSPHAGIA [None]
  - DECREASED APPETITE [None]
  - RESTLESSNESS [None]
